FAERS Safety Report 12601551 (Version 1)
Quarter: 2016Q3

REPORT INFORMATION
  Report Type: Spontaneous
  Country: CA (occurrence: CA)
  Receive Date: 20160728
  Receipt Date: 20160728
  Transmission Date: 20161109
  Serious: Yes (Death, Other)
  Sender: FDA-Public Use
  Company Number: CA-JAZZ-2015-CA-022934

PATIENT

DRUGS (21)
  1. ASPARAGINASE [Suspect]
     Active Substance: ASPARAGINASE
     Indication: CHROMOSOME ANALYSIS ABNORMAL
  2. METHOTREXATE. [Suspect]
     Active Substance: METHOTREXATE
     Indication: CHROMOSOME ANALYSIS ABNORMAL
  3. DOXORUBICIN HYDROCHLORIDE. [Suspect]
     Active Substance: DOXORUBICIN HYDROCHLORIDE
     Indication: CHROMOSOME ANALYSIS ABNORMAL
     Dosage: 30 MG/M2, UNK
     Route: 065
  4. GLEEVEC [Suspect]
     Active Substance: IMATINIB MESYLATE
     Indication: ACUTE LYMPHOCYTIC LEUKAEMIA
     Dosage: 400 MG, QD
     Route: 048
  5. LEUCOVORIN. [Suspect]
     Active Substance: LEUCOVORIN
     Indication: ACUTE LYMPHOCYTIC LEUKAEMIA
     Route: 065
  6. PREDNISONE. [Suspect]
     Active Substance: PREDNISONE
     Indication: CHROMOSOME ANALYSIS ABNORMAL
  7. VINCRISTINE SULFATE. [Suspect]
     Active Substance: VINCRISTINE SULFATE
     Indication: ACUTE LYMPHOCYTIC LEUKAEMIA
     Dosage: 2 MG, UNK
     Route: 042
  8. VINCRISTINE SULFATE. [Suspect]
     Active Substance: VINCRISTINE SULFATE
     Indication: CHROMOSOME ANALYSIS ABNORMAL
     Dosage: 2 MG, UNK
     Route: 065
  9. ASPARAGINASE [Suspect]
     Active Substance: ASPARAGINASE
     Indication: ACUTE LYMPHOCYTIC LEUKAEMIA
     Route: 030
  10. DOXORUBICIN HYDROCHLORIDE. [Suspect]
     Active Substance: DOXORUBICIN HYDROCHLORIDE
     Indication: ACUTE LYMPHOCYTIC LEUKAEMIA
     Dosage: 30 MG/M2, UNK
     Route: 042
  11. METHOTREXATE. [Suspect]
     Active Substance: METHOTREXATE
     Indication: ACUTE LYMPHOCYTIC LEUKAEMIA
     Dosage: 4000 MG/M2, UNK
     Route: 042
  12. CYTARABINE. [Suspect]
     Active Substance: CYTARABINE
     Indication: CHROMOSOME ANALYSIS ABNORMAL
     Dosage: 40 MG, UNK
     Route: 065
  13. LEUCOVORIN. [Suspect]
     Active Substance: LEUCOVORIN
     Indication: CHROMOSOME ANALYSIS ABNORMAL
  14. PREDNISONE. [Suspect]
     Active Substance: PREDNISONE
     Indication: ACUTE LYMPHOCYTIC LEUKAEMIA
     Dosage: 10 MG, QID
     Route: 048
  15. CYTARABINE. [Suspect]
     Active Substance: CYTARABINE
     Indication: ACUTE LYMPHOCYTIC LEUKAEMIA
     Dosage: 40 MG, UNK
     Route: 037
  16. MERCAPTOPURINE. [Suspect]
     Active Substance: MERCAPTOPURINE
     Indication: ACUTE LYMPHOCYTIC LEUKAEMIA
     Dosage: 50 MG/M2, UNK
     Route: 048
  17. MERCAPTOPURINE. [Suspect]
     Active Substance: MERCAPTOPURINE
     Indication: CHROMOSOME ANALYSIS ABNORMAL
  18. DOXORUBICIN HYDROCHLORIDE. [Suspect]
     Active Substance: DOXORUBICIN HYDROCHLORIDE
     Indication: OFF LABEL USE
  19. GLEEVEC [Suspect]
     Active Substance: IMATINIB MESYLATE
     Indication: CHROMOSOME ANALYSIS ABNORMAL
     Dosage: 400 MG, QD
     Route: 065
  20. HYDROCORTISONE. [Suspect]
     Active Substance: HYDROCORTISONE
     Indication: ACUTE LYMPHOCYTIC LEUKAEMIA
     Dosage: 15 MG, UNK
     Route: 037
  21. HYDROCORTISONE. [Suspect]
     Active Substance: HYDROCORTISONE
     Indication: CHROMOSOME ANALYSIS ABNORMAL
     Dosage: 15 MG, UNK
     Route: 065

REACTIONS (1)
  - Multiple organ dysfunction syndrome [Fatal]
